FAERS Safety Report 13743585 (Version 2)
Quarter: 2017Q3

REPORT INFORMATION
  Report Type: Spontaneous
  Country: US (occurrence: US)
  Receive Date: 20170711
  Receipt Date: 20170713
  Transmission Date: 20171127
  Serious: Yes (Life-Threatening)
  Sender: FDA-Public Use
  Company Number: US-BIOGEN-2017BI00426877

PATIENT
  Sex: Female

DRUGS (1)
  1. TECFIDERA [Suspect]
     Active Substance: DIMETHYL FUMARATE
     Indication: MULTIPLE SCLEROSIS
     Route: 065
     Dates: start: 20130927, end: 20131011

REACTIONS (4)
  - Malaise [Recovered/Resolved]
  - Drug ineffective [Unknown]
  - Multiple sclerosis relapse [Not Recovered/Not Resolved]
  - Apparent death [Recovered/Resolved]
